FAERS Safety Report 8956410 (Version 2)
Quarter: 2013Q1

REPORT INFORMATION
  Report Type: Spontaneous
  Country: CA (occurrence: CA)
  Receive Date: 20121210
  Receipt Date: 20130102
  Transmission Date: 20140127
  Serious: Yes (Death)
  Sender: FDA-Public Use
  Company Number: CA-SANOFI-AVENTIS-2012SA087123

PATIENT
  Age: 46 Year
  Sex: Female

DRUGS (8)
  1. PLAQUENIL [Suspect]
     Indication: SYSTEMIC LUPUS ERYTHEMATOSUS
     Dosage: DOSE TITRATED UPTO 200 MG
     Route: 048
  2. PLAQUENIL [Suspect]
     Indication: SYSTEMIC LUPUS ERYTHEMATOSUS
     Dosage: DOSE TITRATED UPTO 200 MG
     Route: 048
  3. HYDROMORPH CONTIN [Concomitant]
     Indication: PAIN
     Dosage: ^PERIOD OF TIME^
     Route: 048
  4. RIVOTRIL [Concomitant]
     Indication: PAIN
     Dosage: ^PERIOD OF TIME^
     Route: 048
  5. DILAUDID [Concomitant]
     Indication: PAIN
     Dosage: ^PERIOD OF TIME^
     Route: 048
  6. TRAZODONE [Concomitant]
     Indication: DEPRESSION
     Dosage: ^PERIOD OF TIME^
     Route: 048
  7. CYMBALTA [Concomitant]
     Indication: PAIN
     Route: 048
     Dates: start: 201206
  8. NASONEX [Concomitant]
     Indication: NASAL CONGESTION
     Route: 045

REACTIONS (2)
  - Death [Fatal]
  - Drug level increased [Not Recovered/Not Resolved]
